FAERS Safety Report 4955780-3 (Version None)
Quarter: 2006Q1

REPORT INFORMATION
  Report Type: 
  Country: None (occurrence: None)
  Receive Date: 20060328
  Receipt Date: 20060317
  Transmission Date: 20060701
  Serious: Yes (Hospitalization)
  Sender: FDA-Public Use
  Company Number: FR-JNJFOC-20060202570

PATIENT
  Age: 59 Year
  Sex: Male

DRUGS (7)
  1. REMICADE [Suspect]
     Route: 042
  2. REMICADE [Suspect]
     Indication: RHEUMATOID ARTHRITIS
     Route: 042
  3. CORTANCYL [Suspect]
     Indication: RHEUMATOID ARTHRITIS
     Route: 048
  4. NOVATREX [Suspect]
     Indication: RHEUMATOID ARTHRITIS
     Route: 048
  5. NIFEDIPINE [Concomitant]
     Indication: ESSENTIAL HYPERTENSION
     Route: 048
  6. IXPRIM [Concomitant]
     Indication: RHEUMATOID ARTHRITIS
     Route: 048
  7. APROVEL [Concomitant]
     Indication: ESSENTIAL HYPERTENSION
     Route: 048

REACTIONS (17)
  - ADRENAL ADENOMA [None]
  - ANAEMIA [None]
  - ANOREXIA [None]
  - ASTHENIA [None]
  - BLOOD POTASSIUM DECREASED [None]
  - BLOOD SODIUM DECREASED [None]
  - DIARRHOEA [None]
  - GENERAL PHYSICAL HEALTH DETERIORATION [None]
  - HEART RATE IRREGULAR [None]
  - LEGIONELLA INFECTION [None]
  - PLATELET COUNT DECREASED [None]
  - RENAL FAILURE [None]
  - RESPIRATORY RATE INCREASED [None]
  - TACHYCARDIA [None]
  - TACHYPNOEA [None]
  - TUBERCULOSIS [None]
  - WEIGHT DECREASED [None]
